FAERS Safety Report 14084057 (Version 2)
Quarter: 2022Q3

REPORT INFORMATION
  Report Type: Report from Study
  Country: CA (occurrence: CA)
  Receive Date: 20171013
  Receipt Date: 20220920
  Transmission Date: 20221026
  Serious: Yes (Life-Threatening, Other)
  Sender: FDA-Public Use
  Company Number: CA-TEVA-813270ACC

PATIENT
  Age: 43 Year
  Sex: Female
  Weight: 117 kg

DRUGS (11)
  1. CINQAIR [Suspect]
     Active Substance: RESLIZUMAB
     Indication: Asthma
     Dosage: STRENGTH: 10 MG/ML; LAST ADMINISTRATION DATE: 03-OCT-2017
     Route: 042
     Dates: start: 20170413
  2. ABILIFY [Concomitant]
     Active Substance: ARIPIPRAZOLE
     Indication: Product used for unknown indication
  3. ADVAIR HFA [Concomitant]
     Active Substance: FLUTICASONE PROPIONATE\SALMETEROL XINAFOATE
     Indication: Product used for unknown indication
     Dosage: METERED-DOSE INHALER
  4. ESCITALOPRAM [Concomitant]
     Active Substance: ESCITALOPRAM OXALATE
     Indication: Product used for unknown indication
  5. FLOVENT [Concomitant]
     Active Substance: FLUTICASONE PROPIONATE
     Indication: Product used for unknown indication
  6. IPRATROPIUM [Concomitant]
     Active Substance: IPRATROPIUM
     Indication: Product used for unknown indication
     Dosage: 250 MCG/ML
  7. PANTOPRAZOLE SODIUM [Concomitant]
     Active Substance: PANTOPRAZOLE SODIUM
     Indication: Product used for unknown indication
     Dosage: ENTERIC COATED
  8. Spirits respimat [Concomitant]
     Indication: Product used for unknown indication
  9. PREDNISONE [Concomitant]
     Active Substance: PREDNISONE
     Indication: Product used for unknown indication
  10. RISEDRONATE SODIUM [Concomitant]
     Active Substance: RISEDRONATE SODIUM
     Indication: Product used for unknown indication
  11. BENADRYL [Concomitant]
     Active Substance: DIPHENHYDRAMINE HYDROCHLORIDE
     Indication: Product used for unknown indication
     Dosage: 30 MINUTES PRIOR TO INFUSION
     Route: 048

REACTIONS (10)
  - Chest discomfort [Recovering/Resolving]
  - Dyspnoea [Recovered/Resolved]
  - Headache [Not Recovered/Not Resolved]
  - Malaise [Recovering/Resolving]
  - Nausea [Recovered/Resolved]
  - Eye swelling [Recovering/Resolving]
  - Hypotension [Recovered/Resolved]
  - Wheezing [Recovered/Resolved]
  - Productive cough [Recovered/Resolved]
  - Dizziness [Recovered/Resolved]

NARRATIVE: CASE EVENT DATE: 20171003
